FAERS Safety Report 20831248 (Version 2)
Quarter: 2022Q2

REPORT INFORMATION
  Report Type: Spontaneous
  Country: US (occurrence: US)
  Receive Date: 20220515
  Receipt Date: 20220524
  Transmission Date: 20220721
  Serious: Yes (Other)
  Sender: FDA-Public Use
  Company Number: US-UROGEN PHARMA LTD.-2022-UGN-000048

PATIENT

DRUGS (6)
  1. JELMYTO [Suspect]
     Active Substance: MITOMYCIN
     Indication: Transitional cell cancer of the renal pelvis and ureter
     Dosage: ONE TIMES PER WEEK (INSTILLATION)
     Dates: start: 20220113, end: 20220113
  2. JELMYTO [Suspect]
     Active Substance: MITOMYCIN
     Dosage: ONE TIMES PER WEEK (INSTILLATION)
     Dates: start: 20220120, end: 20220120
  3. JELMYTO [Suspect]
     Active Substance: MITOMYCIN
     Dosage: ONE TIMES PER WEEK (INSTILLATION)
     Dates: start: 20220201, end: 20220201
  4. JELMYTO [Suspect]
     Active Substance: MITOMYCIN
     Dosage: ONE TIMES PER WEEK (INSTILLATION)
     Dates: start: 20220208, end: 20220208
  5. JELMYTO [Suspect]
     Active Substance: MITOMYCIN
     Dosage: ONE TIMES PER WEEK (INSTILLATION)
     Dates: start: 20220215, end: 20220215
  6. JELMYTO [Suspect]
     Active Substance: MITOMYCIN
     Dosage: ONE TIMES PER WEEK (INSTILLATION)
     Dates: start: 20220222, end: 20220222

REACTIONS (1)
  - Urethral stenosis [Recovered/Resolved]

NARRATIVE: CASE EVENT DATE: 20220101
